FAERS Safety Report 10048354 (Version 2)
Quarter: 2014Q2

REPORT INFORMATION
  Report Type: Spontaneous
  Country: NO (occurrence: NO)
  Receive Date: 20140331
  Receipt Date: 20140606
  Transmission Date: 20141212
  Serious: Yes (Life-Threatening)
  Sender: FDA-Public Use
  Company Number: NO-GLAXOSMITHKLINE-B0978732A

PATIENT
  Age: 52 Year
  Sex: Female

DRUGS (2)
  1. ZOFRAN [Suspect]
     Indication: NAUSEA
     Dosage: 8MG PER DAY
     Route: 042
     Dates: start: 20140216, end: 20140216
  2. MORPHINE [Concomitant]
     Indication: HEART RATE INCREASED
     Dosage: 2.5MG PER DAY
     Route: 042

REACTIONS (7)
  - Atrial fibrillation [Unknown]
  - Heart rate increased [Unknown]
  - Malaise [Recovered/Resolved]
  - Heart rate irregular [Unknown]
  - Arrhythmia supraventricular [Unknown]
  - Chest pain [Recovered/Resolved]
  - Dyspnoea [Recovered/Resolved]
